FAERS Safety Report 11653927 (Version 1)
Quarter: 2015Q4

REPORT INFORMATION
  Report Type: Spontaneous
  Country: None (occurrence: US)
  Receive Date: 20151022
  Receipt Date: 20151022
  Transmission Date: 20160304
  Serious: No
  Sender: FDA-Public Use
  Company Number: US-AMPHASTAR PHARMACEUTICALS, INC.-1043299

PATIENT
  Age: 63 Year
  Sex: Female
  Weight: 61.82 kg

DRUGS (1)
  1. ENOXAPARIN SODIUM. [Suspect]
     Active Substance: ENOXAPARIN SODIUM
     Indication: POSTOPERATIVE CARE
     Route: 058
     Dates: start: 20140924, end: 20141011

REACTIONS (2)
  - Injection site rash [Not Recovered/Not Resolved]
  - Allergy to metals [Not Recovered/Not Resolved]

NARRATIVE: CASE EVENT DATE: 20141004
